FAERS Safety Report 13046677 (Version 1)
Quarter: 2016Q4

REPORT INFORMATION
  Report Type: Spontaneous
  Country: US (occurrence: US)
  Receive Date: 20161220
  Receipt Date: 20161220
  Transmission Date: 20170207
  Serious: No
  Sender: FDA-Public Use
  Company Number: US-ASCEND THERAPEUTICS-1061045

PATIENT
  Age: 72 Year
  Sex: Female

DRUGS (1)
  1. ESTROGEL [Suspect]
     Active Substance: ESTRADIOL
     Indication: HOT FLUSH
     Route: 062
     Dates: start: 20130101

REACTIONS (2)
  - Condition aggravated [None]
  - Hot flush [Recovered/Resolved]

NARRATIVE: CASE EVENT DATE: 20160801
